FAERS Safety Report 8790698 (Version 1)
Quarter: 2012Q4

REPORT INFORMATION
  Report Type: Spontaneous
  Country: US (occurrence: None)
  Receive Date: 20120912
  Receipt Date: 20120912
  Transmission Date: 20130627
  Serious: Yes (Death)
  Sender: FDA-Public Use
  Company Number: None

PATIENT
  Age: 66 Year
  Sex: Male
  Weight: 104.1 kg

DRUGS (4)
  1. PRAVASTATIN [Suspect]
     Indication: HYPERLIPIDEMIA
     Route: 048
     Dates: start: 20110323, end: 20110823
  2. PRAVASTATIN [Suspect]
     Indication: CORONARY STENT PLACEMENT
     Route: 048
     Dates: start: 20110323, end: 20110823
  3. PRAVASTATIN [Suspect]
     Indication: CORONARY ARTERY DISEASE
     Route: 048
     Dates: start: 20110323, end: 20110823
  4. SIMVASTATIN [Suspect]
     Route: 048
     Dates: start: 20110823, end: 20120130

REACTIONS (1)
  - Rhabdomyolysis [None]
